FAERS Safety Report 20656759 (Version 1)
Quarter: 2022Q1

REPORT INFORMATION
  Report Type: Spontaneous
  Country: EG (occurrence: EG)
  Receive Date: 20220331
  Receipt Date: 20220331
  Transmission Date: 20220424
  Serious: Yes (Life-Threatening, Disabling)
  Sender: FDA-Public Use
  Company Number: EG-NOVOPROD-903039

PATIENT
  Age: 65 Year
  Sex: Female
  Weight: 85 kg

DRUGS (7)
  1. INSULIN HUMAN [Suspect]
     Active Substance: INSULIN HUMAN
     Indication: Product used for unknown indication
     Dosage: UNK
     Route: 065
  2. BENFOTIAMINE\CYANOCOBALAMIN\PYRIDOXINE HYDROCHLORIDE [Concomitant]
     Active Substance: BENFOTIAMINE\CYANOCOBALAMIN\PYRIDOXINE HYDROCHLORIDE
     Indication: Nerve injury
     Dosage: UNK
     Route: 065
     Dates: start: 2015
  3. CAL MAG [CALCIUM CARBONATE;MAGNESIUM] [Concomitant]
     Indication: Nerve injury
     Dosage: UNK
     Route: 065
     Dates: start: 2015
  4. GAPTIN [Concomitant]
     Indication: Nerve injury
     Dosage: UNK
     Route: 065
     Dates: start: 2015
  5. ASPIRIN [Concomitant]
     Active Substance: ASPIRIN
     Indication: Product used for unknown indication
     Dosage: UNK (FROM 20 YEARS)
     Route: 065
  6. ENALAPRIL MALEATE [Concomitant]
     Active Substance: ENALAPRIL MALEATE
     Indication: Cardiac disorder
     Dosage: UNK (FROM 2015-2016)
     Route: 065
  7. ENALAPRIL [Concomitant]
     Active Substance: ENALAPRIL
     Indication: Cardiac disorder
     Dosage: UNK (BEFORE 2015)
     Route: 065

REACTIONS (1)
  - Cerebrovascular accident [Unknown]

NARRATIVE: CASE EVENT DATE: 20150101
